FAERS Safety Report 7224656-3 (Version None)
Quarter: 2011Q1

REPORT INFORMATION
  Report Type: 
  Country: None (occurrence: None)
  Receive Date: 20110106
  Receipt Date: 20110106
  Transmission Date: 20110831
  Serious: Yes (Hospitalization, Other)
  Sender: FDA-Public Use
  Company Number: None

PATIENT
  Age: 25 Year
  Sex: Male
  Weight: 72.5755 kg

DRUGS (1)
  1. ANTIFUNGAL LIQUID SPRAY TOLNAFTATE 1% TARGET CORP. -UP AND UP- [Suspect]
     Indication: PRURITUS
     Dosage: THIN LAYER TWICE DAILY
     Dates: start: 20100507, end: 20100510

REACTIONS (6)
  - HYPERSENSITIVITY [None]
  - PRURITUS [None]
  - SKIN IRRITATION [None]
  - APPLICATION SITE VESICLES [None]
  - SKIN EXFOLIATION [None]
  - ABASIA [None]
